FAERS Safety Report 24877437 (Version 4)
Quarter: 2025Q1

REPORT INFORMATION
  Report Type: Report from Study
  Country: IN (occurrence: IN)
  Receive Date: 20250123
  Receipt Date: 20250312
  Transmission Date: 20250409
  Serious: Yes (Death, Hospitalization, Other)
  Sender: ROCHE
  Company Number: IN-ROCHE-10000184643

PATIENT
  Age: 74 Year
  Sex: Male
  Weight: 61.5 kg

DRUGS (3)
  1. TECENTRIQ [Suspect]
     Active Substance: ATEZOLIZUMAB
     Indication: Lung squamous cell carcinoma metastatic
     Route: 042
     Dates: start: 20240924
  2. TECENTRIQ [Suspect]
     Active Substance: ATEZOLIZUMAB
     Route: 042
  3. TECENTRIQ [Suspect]
     Active Substance: ATEZOLIZUMAB
     Route: 042

REACTIONS (18)
  - Generalised tonic-clonic seizure [Unknown]
  - Lung neoplasm [Unknown]
  - Osteolysis [Unknown]
  - Osteolysis [Unknown]
  - Loss of consciousness [Unknown]
  - Pyrexia [Unknown]
  - Cough [Unknown]
  - Necrosis [Unknown]
  - Cerebral mass effect [Unknown]
  - Metastases to central nervous system [Unknown]
  - Hypotension [Unknown]
  - Off label use [Unknown]
  - Blood pressure systolic increased [Unknown]
  - Blood pressure diastolic decreased [Unknown]
  - Glomerular filtration rate decreased [Unknown]
  - Magnetic resonance imaging head abnormal [Unknown]
  - Off label use [Unknown]
  - Death [Fatal]

NARRATIVE: CASE EVENT DATE: 20250105
